FAERS Safety Report 14071058 (Version 1)
Quarter: 2017Q4

REPORT INFORMATION
  Report Type: Spontaneous
  Country: US (occurrence: US)
  Receive Date: 20171011
  Receipt Date: 20171011
  Transmission Date: 20180321
  Serious: No
  Sender: FDA-Public Use
  Company Number: US-APOTEX-2017AP015529

PATIENT
  Age: 51 Year
  Sex: Male

DRUGS (12)
  1. BUPROPION HYDROCHLORIDE. [Suspect]
     Active Substance: BUPROPION HYDROCHLORIDE
     Dosage: 600 MG, Q.AM
     Route: 065
     Dates: start: 201504
  2. LORAZEPAM. [Suspect]
     Active Substance: LORAZEPAM
     Indication: GENERALISED ANXIETY DISORDER
     Dosage: 1 MG, TID
     Route: 048
  3. LORAZEPAM. [Suspect]
     Active Substance: LORAZEPAM
     Dosage: 2 MG, Q.H.S.
     Route: 048
     Dates: start: 201501
  4. BUPROPION HYDROCHLORIDE. [Suspect]
     Active Substance: BUPROPION HYDROCHLORIDE
     Indication: MAJOR DEPRESSION
     Dosage: 300 MG, Q.AM
     Route: 065
     Dates: start: 201410
  5. BUPROPION HYDROCHLORIDE. [Suspect]
     Active Substance: BUPROPION HYDROCHLORIDE
     Dosage: 450 MG, Q.AM
     Route: 048
     Dates: start: 20150304
  6. LORAZEPAM. [Suspect]
     Active Substance: LORAZEPAM
     Indication: INSOMNIA
     Dosage: 2 MG, Q.H.S.
     Route: 048
     Dates: start: 201409
  7. VORTIOXETINE. [Suspect]
     Active Substance: VORTIOXETINE
     Indication: MAJOR DEPRESSION
     Dosage: 10 MG, PER DAY
     Route: 065
     Dates: start: 201408, end: 201409
  8. DELSYM [Concomitant]
     Active Substance: DEXTROMETHORPHAN
     Indication: MAJOR DEPRESSION
     Dosage: 300 MG, BID
     Route: 048
  9. LORAZEPAM. [Suspect]
     Active Substance: LORAZEPAM
     Dosage: 0.5?0.75 MG, TID
     Route: 048
     Dates: start: 201501
  10. MIRTAZAPINE. [Suspect]
     Active Substance: MIRTAZAPINE
     Indication: MAJOR DEPRESSION
  11. VORTIOXETINE. [Suspect]
     Active Substance: VORTIOXETINE
     Dosage: 20 MG, Q.AM
     Route: 048
     Dates: start: 201409, end: 201410
  12. CITALOPRAM [Suspect]
     Active Substance: CITALOPRAM HYDROBROMIDE
     Indication: MAJOR DEPRESSION
     Dosage: 20 MG, Q.AM
     Route: 065
     Dates: start: 2014, end: 201408

REACTIONS (3)
  - Sexual dysfunction [Unknown]
  - Drug ineffective [Unknown]
  - Drug tolerance [Unknown]
